FAERS Safety Report 9104294 (Version 1)
Quarter: 2013Q1

REPORT INFORMATION
  Report Type: Spontaneous
  Country: GR (occurrence: GR)
  Receive Date: 20130220
  Receipt Date: 20130220
  Transmission Date: 20140127
  Serious: Yes (Other)
  Sender: FDA-Public Use
  Company Number: GR-ROCHE-1192870

PATIENT
  Sex: Male

DRUGS (1)
  1. CYMEVENE [Suspect]
     Indication: CONGENITAL CYTOMEGALOVIRUS INFECTION
     Route: 042

REACTIONS (1)
  - Discomfort [Recovered/Resolved]
